FAERS Safety Report 8303415-4 (Version None)
Quarter: 2012Q2

REPORT INFORMATION
  Report Type: 
  Country: None (occurrence: None)
  Receive Date: 20120423
  Receipt Date: 20120413
  Transmission Date: 20120825
  Serious: No
  Sender: FDA-Public Use
  Company Number: US-PFIZER INC-2012093899

PATIENT
  Sex: Male
  Weight: 98.866 kg

DRUGS (13)
  1. NORCO [Suspect]
     Indication: BACK PAIN
     Dosage: HYDROCODONE 10/ACETAMINOPHEN 325
  2. HYDROCHLOROTHIAZIDE [Concomitant]
     Indication: BLOOD PRESSURE
     Dosage: 25 MG, UNK
     Dates: start: 19730101
  3. ALPRAZOLAM [Concomitant]
     Dosage: 0.5 MG, AS NEEDED
  4. TYLENOL (CAPLET) [Suspect]
     Dosage: UNK
  5. CARVEDILOL [Concomitant]
     Indication: BLOOD PRESSURE
     Dosage: 25 MG, UNK
     Dates: start: 19730101
  6. PROTONIX [Concomitant]
     Dosage: UNK
  7. KETOTIFEN [Concomitant]
     Indication: SEASONAL ALLERGY
     Dosage: UNK, AS NEEDED
  8. CLONIDINE [Concomitant]
     Indication: BLOOD PRESSURE SYSTOLIC ABNORMAL
     Dosage: UNK, AS NEEDED
     Dates: start: 19730101
  9. SUTENT [Suspect]
     Indication: METASTATIC RENAL CELL CARCINOMA
     Dosage: 50 MG, UNK (FOR 28 DAYS FOLLOWED BY REST OF 14 DAYS)
     Dates: start: 20120412
  10. LOTREL [Concomitant]
     Indication: BLOOD PRESSURE
     Dosage: AMLODIPINE 10/ BENAZEPRIL HYDROCHLORIDE 20
     Dates: start: 19730101
  11. LIPITOR [Concomitant]
     Dosage: 40 MG, UNK
  12. FLONASE [Concomitant]
     Indication: HYPERSENSITIVITY
     Dosage: UNK, AS NEEDED
  13. METFORMIN [Concomitant]
     Dosage: 500 MG, 2X/DAY

REACTIONS (2)
  - BACK PAIN [None]
  - SOMNOLENCE [None]
